FAERS Safety Report 19583331 (Version 4)
Quarter: 2025Q4

REPORT INFORMATION
  Report Type: Report from Study
  Country: US (occurrence: US)
  Receive Date: 20210720
  Receipt Date: 20251121
  Transmission Date: 20260118
  Serious: Yes (Hospitalization)
  Sender: TAKEDA
  Company Number: US-TAKEDA-2021TUS042892

PATIENT
  Age: 43 Year
  Sex: Female

DRUGS (82)
  1. TEDUGLUTIDE [Suspect]
     Active Substance: TEDUGLUTIDE
     Indication: Short-bowel syndrome
     Dosage: 3.9 MILLIGRAM, QD
     Dates: start: 20150601, end: 20160608
  2. TEDUGLUTIDE [Suspect]
     Active Substance: TEDUGLUTIDE
     Dosage: 3.8 MILLIGRAM, QD
     Dates: start: 20170801
  3. TEDUGLUTIDE [Suspect]
     Active Substance: TEDUGLUTIDE
  4. TEDUGLUTIDE [Suspect]
     Active Substance: TEDUGLUTIDE
  5. TRIAMCINOLONE [Concomitant]
     Active Substance: TRIAMCINOLONE
     Indication: Product used for unknown indication
     Dosage: UNK
     Route: 061
  6. IOPAMIDOL [Concomitant]
     Active Substance: IOPAMIDOL
     Indication: Product used for unknown indication
     Dosage: 150 MILLILITER, ONCE
     Dates: start: 20200117, end: 20200117
  7. IOPAMIDOL [Concomitant]
     Active Substance: IOPAMIDOL
     Dosage: 150 MILLILITER, SINGLE
     Dates: start: 20200624, end: 20200624
  8. ACETAMINOPHEN [Concomitant]
     Active Substance: ACETAMINOPHEN
     Indication: Pain
     Dosage: 10 MILLIGRAM/KILOGRAM, QID
     Dates: start: 20180507, end: 20180521
  9. ACETAMINOPHEN [Concomitant]
     Active Substance: ACETAMINOPHEN
     Dosage: 640 MILLIGRAM, QID
     Dates: start: 20180601, end: 20180604
  10. ACETAMINOPHEN [Concomitant]
     Active Substance: ACETAMINOPHEN
     Dosage: 20 MILLILITER, QID
     Dates: start: 20180601, end: 20180604
  11. ACETAMINOPHEN [Concomitant]
     Active Substance: ACETAMINOPHEN
     Dosage: 650 MILLIGRAM, SINGLE
     Dates: start: 20200205, end: 20200205
  12. ACETAMINOPHEN [Concomitant]
     Active Substance: ACETAMINOPHEN
     Dosage: 650 MILLIGRAM, ONCE
     Dates: start: 20200616, end: 20200616
  13. VEDOLIZUMAB [Concomitant]
     Active Substance: VEDOLIZUMAB
     Indication: Crohn^s disease
     Dosage: 300 MILLIGRAM
  14. FAMOTIDINE [Concomitant]
     Active Substance: FAMOTIDINE
     Indication: Prophylaxis
     Dosage: 20 MILLIGRAM, SINGLE
     Dates: start: 20180415, end: 20180415
  15. FAMOTIDINE [Concomitant]
     Active Substance: FAMOTIDINE
     Indication: Gastrooesophageal reflux disease
     Dosage: 20 MILLIGRAM, BID
     Dates: start: 20181030, end: 20181129
  16. FAMOTIDINE [Concomitant]
     Active Substance: FAMOTIDINE
     Dosage: 20 MILLIGRAM, SINGLE
     Dates: start: 20200205, end: 20200205
  17. HYDROCORTISONE [Concomitant]
     Active Substance: HYDROCORTISONE
     Indication: Rectal haemorrhage
     Dosage: 100 MILLIGRAM, QD
     Dates: start: 20190220, end: 20190313
  18. MIDAZOLAM [Concomitant]
     Active Substance: MIDAZOLAM
     Indication: Feeling of relaxation
     Dosage: 1 MILLIGRAM, SINGLE
     Dates: start: 20171231, end: 20171231
  19. MIDAZOLAM [Concomitant]
     Active Substance: MIDAZOLAM
     Dosage: UNK
     Dates: start: 20171231, end: 20171231
  20. MIDAZOLAM [Concomitant]
     Active Substance: MIDAZOLAM
     Dosage: 5 MILLIGRAM, SINGLE
     Dates: start: 20180507, end: 20180507
  21. MIDAZOLAM [Concomitant]
     Active Substance: MIDAZOLAM
     Dosage: 1 MILLIGRAM, SINGLE
     Dates: start: 20180507, end: 20180507
  22. FENTANYL [Concomitant]
     Active Substance: FENTANYL
     Indication: Analgesic therapy
     Dosage: 50 MICROGRAM, SINGLE
     Dates: start: 20171231, end: 20171231
  23. FENTANYL [Concomitant]
     Active Substance: FENTANYL
     Dosage: UNK
     Dates: start: 20171231, end: 20171231
  24. FENTANYL [Concomitant]
     Active Substance: FENTANYL
     Dosage: 50 MICROGRAM, SINGLE
     Dates: start: 20180507, end: 20180507
  25. FENTANYL [Concomitant]
     Active Substance: FENTANYL
     Dosage: 100 MICROGRAM, SINGLE
     Dates: start: 20180507, end: 20180507
  26. SODIUM CHLORIDE [Concomitant]
     Active Substance: SODIUM CHLORIDE
     Indication: Fluid replacement
     Dosage: 100 MILLILITER, SINGLE
     Dates: start: 20180227, end: 20180227
  27. SODIUM CHLORIDE [Concomitant]
     Active Substance: SODIUM CHLORIDE
     Dosage: 4 MILLILITER, SINGLE
     Dates: start: 20180413, end: 20180413
  28. SODIUM CHLORIDE [Concomitant]
     Active Substance: SODIUM CHLORIDE
     Dosage: 1000 MILLIGRAM
     Dates: start: 20180504, end: 20180504
  29. SODIUM CHLORIDE [Concomitant]
     Active Substance: SODIUM CHLORIDE
     Dosage: 1000 MILLIGRAM
     Dates: start: 20180531, end: 20180531
  30. SODIUM CHLORIDE [Concomitant]
     Active Substance: SODIUM CHLORIDE
     Dosage: 250 MILLILITER, SINGLE
     Dates: start: 20200616, end: 20200616
  31. ONDANSETRON [Concomitant]
     Active Substance: ONDANSETRON
     Indication: Nausea
     Dosage: 4 MILLIGRAM, TID
     Dates: start: 20180413, end: 20180413
  32. ONDANSETRON [Concomitant]
     Active Substance: ONDANSETRON
     Indication: Vomiting
     Dosage: 4 MILLIGRAM, SINGLE
     Dates: start: 20180504, end: 20180504
  33. ONDANSETRON [Concomitant]
     Active Substance: ONDANSETRON
     Dosage: 4 MILLIGRAM, TID
     Dates: start: 20180507, end: 20180514
  34. ONDANSETRON [Concomitant]
     Active Substance: ONDANSETRON
     Dosage: 4 MILLIGRAM, SINGLE
     Dates: start: 20180531, end: 20180531
  35. ONDANSETRON [Concomitant]
     Active Substance: ONDANSETRON
     Dosage: 4 MILLIGRAM, SINGLE
     Dates: start: 20180504, end: 20180505
  36. LIDOCAINE [Concomitant]
     Active Substance: LIDOCAINE
     Indication: Central venous catheterisation
     Dosage: 1 MILLILITER, SINGLE
     Dates: start: 20180413, end: 20180413
  37. GABAPENTIN [Concomitant]
     Active Substance: GABAPENTIN
     Dosage: 300 MILLIGRAM, SINGLE
     Dates: start: 20180413, end: 20180413
  38. BUPIVACAINE [Concomitant]
     Active Substance: BUPIVACAINE
     Indication: Anaesthesia
     Dosage: 1.25 MILLIGRAM, SINGLE
     Dates: start: 20180413, end: 20180413
  39. MAGNESIUM SULFATE [Concomitant]
     Active Substance: MAGNESIUM SULFATE
     Indication: Blood magnesium decreased
     Dosage: 2 GRAM, SINGLE
     Dates: start: 20180415, end: 20180415
  40. MAGNESIUM SULFATE [Concomitant]
     Active Substance: MAGNESIUM SULFATE
     Dosage: 2 GRAM, SINGLE
     Dates: start: 20180416, end: 20180416
  41. POTASSIUM CHLORIDE [Concomitant]
     Active Substance: POTASSIUM CHLORIDE
     Indication: Blood potassium decreased
     Dosage: UNK
     Dates: start: 20180416, end: 20180416
  42. OXYCODONE [Concomitant]
     Active Substance: OXYCODONE
     Indication: Analgesic therapy
     Dosage: 5 MILLIGRAM
     Dates: start: 20180415, end: 20180422
  43. OXYCODONE [Concomitant]
     Active Substance: OXYCODONE
     Dosage: 5 MILLIGRAM
     Dates: start: 20180507, end: 20180514
  44. OXYCODONE [Concomitant]
     Active Substance: OXYCODONE
     Dosage: 5 MILLIGRAM, BID
     Dates: start: 20180730, end: 20180730
  45. OXYCODONE [Concomitant]
     Active Substance: OXYCODONE
     Dosage: 5 MILLILITER, BID
     Dates: start: 20180730, end: 20180804
  46. OXYCODONE [Concomitant]
     Active Substance: OXYCODONE
     Dosage: 5 MILLILITER, BID
     Dates: start: 20180730, end: 20180804
  47. CEPHALEXIN [Concomitant]
     Active Substance: CEPHALEXIN
     Indication: Infection prophylaxis
     Dosage: 500 MILLIGRAM, QID
     Dates: start: 20180415, end: 20180422
  48. METRONIDAZOLE [Concomitant]
     Active Substance: METRONIDAZOLE
     Indication: Abdominal infection
     Dosage: 500 MILLIGRAM, SINGLE
     Dates: start: 20180504, end: 20180504
  49. HYDROMORPHONE [Concomitant]
     Active Substance: HYDROMORPHONE
     Indication: Analgesic therapy
     Dosage: 10 MICROGRAM
     Dates: start: 20180413, end: 20180413
  50. HYDROMORPHONE [Concomitant]
     Active Substance: HYDROMORPHONE
     Dosage: 1 MILLIGRAM, SINGLE
     Dates: start: 20180504, end: 20180504
  51. HYDROMORPHONE [Concomitant]
     Active Substance: HYDROMORPHONE
     Dosage: 1 MILLIGRAM, SINGLE
     Dates: start: 20180507, end: 20180507
  52. HYDROMORPHONE [Concomitant]
     Active Substance: HYDROMORPHONE
     Dosage: 0.5 MILLIGRAM, SINGLE
     Dates: start: 20180507, end: 20180507
  53. HYDROMORPHONE [Concomitant]
     Active Substance: HYDROMORPHONE
     Dosage: 1 MILLIGRAM, SINGLE
     Dates: start: 20180507, end: 20180507
  54. HYDROMORPHONE [Concomitant]
     Active Substance: HYDROMORPHONE
     Dosage: 0.5 MILLIGRAM, SINGLE
     Dates: start: 20180507, end: 20180507
  55. CEFEPIME [Concomitant]
     Active Substance: CEFEPIME HYDROCHLORIDE
     Indication: Abdominal infection
     Dosage: 2 GRAM, SINGLE
     Dates: start: 20180504, end: 20180504
  56. CYANOCOBALAMIN [Concomitant]
     Active Substance: CYANOCOBALAMIN
     Indication: Vitamin B12 deficiency
     Dosage: 1000 MICROGRAM, MONTHLY
     Dates: start: 20180505, end: 20180505
  57. OXYBUTYNIN [Concomitant]
     Active Substance: OXYBUTYNIN
     Dosage: 5 MILLIGRAM, QID
     Dates: start: 20180507, end: 20180521
  58. HEPARIN [Concomitant]
     Active Substance: HEPARIN SODIUM
     Dosage: 4000 INTERNATIONAL UNIT
     Dates: start: 20180507, end: 20180507
  59. DIPHENHYDRAMINE [Concomitant]
     Active Substance: DIPHENHYDRAMINE
     Indication: Prophylaxis
     Dosage: 50 MILLIGRAM, SINGLE
     Dates: start: 20180507, end: 20180507
  60. DIPHENHYDRAMINE [Concomitant]
     Active Substance: DIPHENHYDRAMINE
     Dosage: 25 MILLIGRAM, SINGLE
     Dates: start: 20200205, end: 20200205
  61. DIPHENHYDRAMINE [Concomitant]
     Active Substance: DIPHENHYDRAMINE
     Dosage: 25 MILLIGRAM, SINGLE
     Dates: start: 20200616, end: 20200616
  62. CIPROFLOXACIN [Concomitant]
     Active Substance: CIPROFLOXACIN
     Indication: Infection
     Dosage: 500 MILLIGRAM, BID
     Dates: start: 20180507, end: 20180512
  63. BACITRACIN [Concomitant]
     Active Substance: BACITRACIN
     Indication: Skin infection
     Dosage: 500 INTERNATIONAL UNIT, TID
     Route: 061
     Dates: start: 20180507, end: 20180528
  64. ALTEPLASE [Concomitant]
     Active Substance: ALTEPLASE
     Dosage: 4 MILLIGRAM, SINGLE
     Dates: start: 20180507, end: 20180507
  65. IRON SUCROSE [Concomitant]
     Active Substance: IRON SUCROSE
     Indication: Iron deficiency
     Dosage: 100 MILLIGRAM, SINGLE
     Dates: start: 20180227, end: 20180227
  66. ERGOCALCIFEROL [Concomitant]
     Active Substance: ERGOCALCIFEROL
     Indication: Vitamin D deficiency
     Dosage: 50000 INTERNATIONAL UNIT, 1/WEEK
     Dates: start: 20191122, end: 20200710
  67. ERGOCALCIFEROL [Concomitant]
     Active Substance: ERGOCALCIFEROL
     Dosage: 50000 INTERNATIONAL UNIT
     Dates: start: 20200710, end: 20201013
  68. ERGOCALCIFEROL [Concomitant]
     Active Substance: ERGOCALCIFEROL
     Dosage: 50000 INTERNATIONAL UNIT, 2/WEEK
     Dates: start: 20201015, end: 20201019
  69. ERGOCALCIFEROL [Concomitant]
     Active Substance: ERGOCALCIFEROL
     Dosage: 50000 INTERNATIONAL UNIT
  70. ENOXAPARIN [Concomitant]
     Active Substance: ENOXAPARIN
     Indication: Anticoagulant therapy
     Dosage: 80 MILLIGRAM, BID
     Dates: start: 20200129
  71. INFED [Concomitant]
     Active Substance: IRON DEXTRAN
     Indication: Iron deficiency
     Dosage: 25 MILLIGRAM, SINGLE
     Dates: start: 20200205, end: 20200205
  72. INFED [Concomitant]
     Active Substance: IRON DEXTRAN
     Dosage: 500 MILLIGRAM, SINGLE
     Dates: start: 20200616, end: 20200616
  73. NORETHINDRONE [Concomitant]
     Active Substance: NORETHINDRONE
     Dosage: 5 MILLIGRAM, QD
     Dates: start: 20200423
  74. ESTRADIOL [Concomitant]
     Active Substance: ESTRADIOL
     Indication: Menopause
     Dosage: UNK UNK, 2/WEEK
     Dates: start: 20200528
  75. GLUCAGON [Concomitant]
     Active Substance: GLUCAGON
     Indication: Diabetes mellitus
     Dosage: 1 MILLIGRAM, SINGLE
     Dates: start: 20200529, end: 20200529
  76. MULTIHANCE [Concomitant]
     Active Substance: GADOBENATE DIMEGLUMINE
     Dosage: 16 MILLILITER, SINGLE
     Dates: start: 20200529, end: 20200529
  77. VANCOMYCIN [Concomitant]
     Active Substance: VANCOMYCIN
     Indication: Abdominal infection
     Dosage: 2000 MILLIGRAM
  78. LEVOTHYROXINE [Concomitant]
     Active Substance: LEVOTHYROXINE
     Indication: Hypothyroidism
     Dosage: 25 MICROGRAM
  79. STELARA [Concomitant]
     Active Substance: USTEKINUMAB
     Indication: Fistula
     Dosage: UNK
  80. CHOLECALCIFEROL [Concomitant]
     Active Substance: CHOLECALCIFEROL
     Indication: Vitamin D deficiency
     Dosage: 1250 MICROGRAM, QOD
     Dates: start: 20240103
  81. TREMFYA [Concomitant]
     Active Substance: GUSELKUMAB
     Indication: Crohn^s disease
     Dosage: 2 MILLILITER
  82. ARIXTRA [Concomitant]
     Active Substance: FONDAPARINUX SODIUM
     Indication: Thrombosis
     Dosage: 0.6 MILLILITER, QD
     Dates: start: 20210504

REACTIONS (2)
  - Pyrexia [Recovered/Resolved]
  - Fistula [Recovered/Resolved]

NARRATIVE: CASE EVENT DATE: 20210310
